FAERS Safety Report 5277839-6 (Version None)
Quarter: 2007Q1

REPORT INFORMATION
  Report Type: 
  Country: None (occurrence: None)
  Receive Date: 20070327
  Receipt Date: 20070315
  Transmission Date: 20070707
  Serious: Yes (Other)
  Sender: FDA-Public Use
  Company Number: KR-PFIZER INC-2007017879

PATIENT
  Sex: Female

DRUGS (8)
  1. LYRICA [Suspect]
     Indication: POST HERPETIC NEURALGIA
     Route: 048
  2. VALSARTAN AND HYDROCHLOROTHIAZIDE [Concomitant]
     Route: 048
  3. ASTRIX [Concomitant]
     Route: 048
  4. CARVEDILOL [Concomitant]
     Route: 048
  5. ZOLPIDEM [Concomitant]
     Route: 048
     Dates: start: 20061201
  6. ALPRAZOLAM [Concomitant]
     Route: 048
     Dates: start: 20061201
  7. ASPIRIN [Concomitant]
     Route: 048
     Dates: start: 20061201
  8. ENALAPRIL MALEATE [Concomitant]
     Route: 048
     Dates: start: 20061201

REACTIONS (2)
  - DYSPNOEA [None]
  - FACE OEDEMA [None]
